FAERS Safety Report 13050567 (Version 1)
Quarter: 2016Q4

REPORT INFORMATION
  Report Type: Spontaneous
  Country: US (occurrence: US)
  Receive Date: 20161221
  Receipt Date: 20161221
  Transmission Date: 20170207
  Serious: Yes (Other)
  Sender: FDA-Public Use
  Company Number: US-NOVOPROD-503361

PATIENT
  Sex: Female
  Weight: 122.45 kg

DRUGS (4)
  1. IRON SUPPLEMENT WITH VIT C + HERBS [Concomitant]
     Indication: BLOOD IRON DECREASED
  2. HUMALOG [Concomitant]
     Active Substance: INSULIN LISPRO
     Indication: TYPE 2 DIABETES MELLITUS
  3. VITAMIN B12 [Concomitant]
     Active Substance: CYANOCOBALAMIN
     Indication: PRODUCT USED FOR UNKNOWN INDICATION
  4. LEVEMIR [Suspect]
     Active Substance: INSULIN DETEMIR
     Indication: TYPE 2 DIABETES MELLITUS
     Dosage: 20 U, QD IN THE AM
     Route: 058
     Dates: start: 2014

REACTIONS (12)
  - Weight increased [Unknown]
  - Diarrhoea [Not Recovered/Not Resolved]
  - Blood glucose increased [Recovering/Resolving]
  - Abdominal distension [Not Recovered/Not Resolved]
  - Glycosylated haemoglobin increased [Recovering/Resolving]
  - Depressed mood [Unknown]
  - Blood glucose increased [Recovering/Resolving]
  - Feeling cold [Recovered/Resolved]
  - Asthenia [Not Recovered/Not Resolved]
  - Blood glucose increased [Recovering/Resolving]
  - Palpitations [Not Recovered/Not Resolved]
  - Condition aggravated [Not Recovered/Not Resolved]

NARRATIVE: CASE EVENT DATE: 2014
